FAERS Safety Report 15790079 (Version 1)
Quarter: 2019Q1

REPORT INFORMATION
  Report Type: Spontaneous
  Country: CA (occurrence: CA)
  Receive Date: 20190104
  Receipt Date: 20190104
  Transmission Date: 20190417
  Serious: Yes (Other)
  Sender: FDA-Public Use
  Company Number: CA-BAYER-2019-001414

PATIENT
  Age: 79 Year
  Sex: Female
  Weight: 65 kg

DRUGS (16)
  1. EPREX [Concomitant]
     Active Substance: ERYTHROPOIETIN
  2. AMLODIPINE [Concomitant]
     Active Substance: AMLODIPINE BESYLATE
     Dosage: UNK
  3. BISOPROLOL [Concomitant]
     Active Substance: BISOPROLOL
  4. DOCUSATE [Concomitant]
     Active Substance: DOCUSATE
  5. SODIUM POLYSTYRENE SULFONATE. [Concomitant]
     Active Substance: SODIUM POLYSTYRENE SULFONATE
  6. AZITHROMYCIN ANHYDROUS. [Suspect]
     Active Substance: AZITHROMYCIN ANHYDROUS
     Indication: COUGH
     Dosage: 500 DF, ONCE
     Route: 048
  7. ACETYLSALICYLIC ACID({=100 MG) [Suspect]
     Active Substance: ASPIRIN
     Dosage: UNK
  8. CEFAZOLIN [Suspect]
     Active Substance: CEFAZOLIN
     Indication: PERITONITIS
  9. ERGOCALCIFEROL. [Concomitant]
     Active Substance: ERGOCALCIFEROL
  10. NEPAFENAC [Concomitant]
     Active Substance: NEPAFENAC
  11. FLUTICASONE. [Concomitant]
     Active Substance: FLUTICASONE
  12. MEGESTROL [Concomitant]
     Active Substance: MEGESTROL
  13. ONE ALPHA [Concomitant]
     Active Substance: ALFACALCIDOL
  14. PANTOPRAZOLE [Concomitant]
     Active Substance: PANTOPRAZOLE
  15. SALBUTAMOL [Concomitant]
     Active Substance: ALBUTEROL
  16. SEVELAMER [Concomitant]
     Active Substance: SEVELAMER

REACTIONS (7)
  - Pruritus [Recovering/Resolving]
  - Lip swelling [Recovering/Resolving]
  - Oral disorder [Recovering/Resolving]
  - Product dose omission [Recovering/Resolving]
  - Laryngeal discomfort [Recovering/Resolving]
  - Arthralgia [Recovering/Resolving]
  - Blister [Recovering/Resolving]
